FAERS Safety Report 17865892 (Version 6)
Quarter: 2024Q4

REPORT INFORMATION
  Report Type: Spontaneous
  Country: US (occurrence: US)
  Receive Date: 20200605
  Receipt Date: 20241205
  Transmission Date: 20250115
  Serious: No
  Sender: PFIZER
  Company Number: US-PFIZER INC-2020219776

PATIENT
  Age: 78 Year
  Sex: Female

DRUGS (2)
  1. ESTRING [Suspect]
     Active Substance: ESTRADIOL
     Indication: Atrophic vulvovaginitis
     Dosage: 2 MG (UNTIL DISCONTINUED)
     Route: 067
     Dates: start: 20200205
  2. ESTRING [Suspect]
     Active Substance: ESTRADIOL
     Indication: Urinary tract infection
     Dosage: PLACE 1(ONE) DEVICE VAGINALLY ONCE FOR 1 DOSE
     Route: 067

REACTIONS (1)
  - Device use issue [Unknown]
